FAERS Safety Report 4534727-8 (Version None)
Quarter: 2004Q4

REPORT INFORMATION
  Report Type: 
  Country: None (occurrence: None)
  Receive Date: 20041222
  Receipt Date: 20031216
  Transmission Date: 20050328
  Serious: No
  Sender: FDA-Public Use
  Company Number: US-BRISTOL-MYERS SQUIBB COMPANY-12459327

PATIENT
  Age: 88 Year
  Sex: Male

DRUGS (3)
  1. PRAVACHOL [Suspect]
     Indication: HYPERCHOLESTEROLAEMIA
     Route: 048
  2. ENALAPRIL [Concomitant]
  3. ASPIRIN [Concomitant]

REACTIONS (1)
  - RASH [None]
